FAERS Safety Report 11186088 (Version 1)
Quarter: 2015Q2

REPORT INFORMATION
  Report Type: Spontaneous
  Country: US (occurrence: US)
  Receive Date: 20150612
  Receipt Date: 20150612
  Transmission Date: 20150821
  Serious: No
  Sender: FDA-Public Use
  Company Number: US-ELI_LILLY_AND_COMPANY-US201505005863

PATIENT
  Sex: Male

DRUGS (1)
  1. ADCIRCA [Suspect]
     Active Substance: TADALAFIL
     Indication: PULMONARY HYPERTENSION

REACTIONS (6)
  - Dyspepsia [Recovered/Resolved]
  - Rash [Unknown]
  - Wrong technique in drug usage process [Unknown]
  - Pain in extremity [Recovered/Resolved]
  - Headache [Unknown]
  - Flushing [Recovered/Resolved]
